FAERS Safety Report 21381679 (Version 1)
Quarter: 2022Q3

REPORT INFORMATION
  Report Type: Spontaneous
  Country: US (occurrence: None)
  Receive Date: 20220926
  Receipt Date: 20220926
  Transmission Date: 20221026
  Serious: Yes (Life-Threatening, Other)
  Sender: FDA-Public Use
  Company Number: None

PATIENT
  Age: 28 Year
  Weight: 63 kg

DRUGS (2)
  1. ESTRADIOL CYPIONATE [Suspect]
     Active Substance: ESTRADIOL CYPIONATE
     Indication: Gender dysphoria
     Dates: start: 20220906
  2. ESTRADIOL CYPIONATE [Suspect]
     Active Substance: ESTRADIOL CYPIONATE
     Indication: Menopausal symptoms

REACTIONS (4)
  - Menopausal symptoms [None]
  - Condition aggravated [None]
  - Product tampering [None]
  - Product formulation issue [None]

NARRATIVE: CASE EVENT DATE: 20220906
